FAERS Safety Report 9726264 (Version 1)
Quarter: 2013Q4

REPORT INFORMATION
  Report Type: Report from Study
  Country: US (occurrence: US)
  Receive Date: 20131203
  Receipt Date: 20131203
  Transmission Date: 20140711
  Serious: Yes (Hospitalization)
  Sender: FDA-Public Use
  Company Number: US-BAYER-2013-144295

PATIENT
  Age: 67 Year
  Sex: Female

DRUGS (2)
  1. STIVARGA [Suspect]
     Indication: NEOPLASM MALIGNANT
     Dosage: 160 MG/DAY
     Route: 048
     Dates: start: 20130921, end: 201311
  2. STIVARGA [Suspect]
     Indication: NEOPLASM MALIGNANT
     Dates: start: 201311, end: 201311

REACTIONS (2)
  - Speech disorder [None]
  - Constipation [None]
